FAERS Safety Report 5326918-3 (Version None)
Quarter: 2007Q2

REPORT INFORMATION
  Report Type: 
  Country: None (occurrence: None)
  Receive Date: 20070510
  Receipt Date: 20070427
  Transmission Date: 20071010
  Serious: Yes (Other)
  Sender: FDA-Public Use
  Company Number: 2007318374

PATIENT
  Age: 56 Year
  Sex: Male
  Weight: 99.3 kg

DRUGS (1)
  1. ROGAINE 5 [Suspect]
     Indication: ALOPECIA
     Dosage: HALF A CAPFUL TWICE A DAY (2 IN 1 D), TOPICAL
     Route: 061
     Dates: start: 20070317, end: 20070423

REACTIONS (2)
  - BLOOD PRESSURE INCREASED [None]
  - DIZZINESS [None]
